FAERS Safety Report 6318681-4 (Version None)
Quarter: 2009Q3

REPORT INFORMATION
  Report Type: 
  Country: None (occurrence: None)
  Receive Date: 20090821
  Receipt Date: 20090819
  Transmission Date: 20100115
  Serious: Yes (Hospitalization)
  Sender: FDA-Public Use
  Company Number: US-ROXANE LABORATORIES, INC.-2009-RO-00849RO

PATIENT
  Age: 14 Year
  Sex: Male

DRUGS (15)
  1. PREDNISONE [Suspect]
     Indication: BRONCHOPULMONARY ASPERGILLOSIS ALLERGIC
     Dosage: 60 MG
     Route: 048
  2. PREDNISONE [Suspect]
     Route: 048
  3. FLUTICASONE [Suspect]
     Indication: BRONCHOPULMONARY ASPERGILLOSIS ALLERGIC
     Route: 055
  4. ALBUTEROL [Suspect]
     Indication: BRONCHOPULMONARY ASPERGILLOSIS ALLERGIC
     Route: 055
  5. ALPHA DORNASE [Suspect]
     Indication: BRONCHOPULMONARY ASPERGILLOSIS ALLERGIC
     Route: 055
  6. HYPERTONIC SALINE [Suspect]
     Indication: BRONCHOPULMONARY ASPERGILLOSIS ALLERGIC
     Route: 055
  7. TOBRAMYCIN [Suspect]
     Indication: BRONCHOPULMONARY ASPERGILLOSIS ALLERGIC
     Route: 042
  8. CEFEPIME [Suspect]
     Indication: BRONCHOPULMONARY ASPERGILLOSIS ALLERGIC
  9. LANSOPROZOLE [Suspect]
     Indication: BRONCHOPULMONARY ASPERGILLOSIS ALLERGIC
  10. MULTI-VITAMINS [Suspect]
     Indication: BRONCHOPULMONARY ASPERGILLOSIS ALLERGIC
  11. PANCREATIC ENZYMES [Suspect]
     Indication: BRONCHOPULMONARY ASPERGILLOSIS ALLERGIC
  12. ITRACONAZOLE [Suspect]
     Indication: BRONCHOPULMONARY ASPERGILLOSIS ALLERGIC
     Dosage: 400 MG
  13. ITRACONAZOLE [Suspect]
     Dosage: 500 MG
  14. INSULIN [Suspect]
     Indication: DIABETES MELLITUS
  15. OMALIZUMAB [Concomitant]
     Indication: BRONCHOPULMONARY ASPERGILLOSIS ALLERGIC
     Route: 058

REACTIONS (3)
  - BRONCHOPULMONARY ASPERGILLOSIS ALLERGIC [None]
  - DIABETES MELLITUS [None]
  - PULMONARY FUNCTION TEST ABNORMAL [None]
